FAERS Safety Report 4614846-8 (Version None)
Quarter: 2005Q1

REPORT INFORMATION
  Report Type: 
  Country: None (occurrence: None)
  Receive Date: 20050318
  Receipt Date: 20050318
  Transmission Date: 20050727
  Serious: No
  Sender: FDA-Public Use
  Company Number: None

PATIENT
  Age: 81 Year
  Sex: Male

DRUGS (11)
  1. EPTIFIBATIDE [Suspect]
     Indication: MYOCARDIAL INFARCTION
     Dosage: 2MCG/KG/MIN    IV
     Route: 042
     Dates: start: 20050108, end: 20050108
  2. HEPARIN [Concomitant]
  3. NITRO [Concomitant]
  4. BB [Concomitant]
  5. ACE INH [Concomitant]
  6. ASPIRIN [Concomitant]
  7. PLAVIX [Concomitant]
  8. SERTRALINE HCL [Concomitant]
  9. SIMVASTATIN [Concomitant]
  10. TRAZODONE HCL [Concomitant]
  11. OMEPRAZOLE [Concomitant]

REACTIONS (1)
  - PLATELET COUNT DECREASED [None]
